FAERS Safety Report 6845088-3 (Version None)
Quarter: 2010Q3

REPORT INFORMATION
  Report Type: 
  Country: None (occurrence: None)
  Receive Date: 20100715
  Receipt Date: 20070810
  Transmission Date: 20110219
  Serious: No
  Sender: FDA-Public Use
  Company Number: US-PFIZER INC-2007067990

PATIENT
  Sex: Female

DRUGS (3)
  1. CHANTIX [Suspect]
     Route: 048
     Dates: start: 20070806
  2. PROZAC [Suspect]
     Dates: start: 20070806
  3. NEURONTIN [Concomitant]

REACTIONS (3)
  - ABNORMAL BEHAVIOUR [None]
  - FEELING JITTERY [None]
  - TREMOR [None]
